FAERS Safety Report 8320415-9 (Version None)
Quarter: 2012Q2

REPORT INFORMATION
  Report Type: 
  Country: None (occurrence: None)
  Receive Date: 20120430
  Receipt Date: 20120423
  Transmission Date: 20120825
  Serious: Yes (Hospitalization, Other)
  Sender: FDA-Public Use
  Company Number: US-BAYER-2011-088312

PATIENT
  Age: 25 Year
  Sex: Female
  Weight: 95.238 kg

DRUGS (8)
  1. YAZ [Suspect]
     Dosage: UNK
     Dates: start: 20060101, end: 20080101
  2. NORVASC [Concomitant]
     Indication: ANGINA PECTORIS
  3. DIURETICS [Concomitant]
     Dosage: UNK
  4. METFORMIN HCL [Concomitant]
     Indication: DIABETES MELLITUS
     Dosage: UNK
     Dates: start: 20060101
  5. SPIRONOLACTONE [Concomitant]
     Indication: FLUID RETENTION
     Dosage: UNK
     Dates: start: 20060101
  6. NSAID'S [Concomitant]
     Dosage: UNK
  7. ALBERTROL [Concomitant]
     Indication: ASTHMA
     Dosage: UNK
  8. NORVASC [Concomitant]
     Indication: HYPERTENSION
     Dosage: UNK
     Dates: start: 20060101

REACTIONS (9)
  - BILIARY SEPSIS [None]
  - DEEP VEIN THROMBOSIS [None]
  - GENERAL PHYSICAL HEALTH DETERIORATION [None]
  - ANHEDONIA [None]
  - CHOLECYSTITIS ACUTE [None]
  - EMOTIONAL DISTRESS [None]
  - INTRACARDIAC THROMBUS [None]
  - ANXIETY [None]
  - PAIN [None]
